FAERS Safety Report 21279812 (Version 7)
Quarter: 2023Q1

REPORT INFORMATION
  Report Type: Report from Study
  Country: US (occurrence: US)
  Receive Date: 20220901
  Receipt Date: 20230114
  Transmission Date: 20230417
  Serious: Yes (Hospitalization, Other)
  Sender: FDA-Public Use
  Company Number: US-002147023-NVSC2022US195645

PATIENT
  Sex: Female

DRUGS (4)
  1. ENTRESTO [Suspect]
     Active Substance: SACUBITRIL\VALSARTAN
     Indication: Product used for unknown indication
     Dosage: 1 DOSAGE FORM, BID (24/26 MG)
     Route: 048
     Dates: start: 20220801
  2. VALSARTAN [Suspect]
     Active Substance: VALSARTAN
     Indication: Product used for unknown indication
     Dosage: UNK
     Route: 065
  3. IBUPROFEN [Concomitant]
     Active Substance: IBUPROFEN
     Indication: Product used for unknown indication
     Dosage: UNK
     Route: 065
  4. ASPIRIN [Concomitant]
     Active Substance: ASPIRIN
     Indication: Product used for unknown indication
     Dosage: UNK, QD (LOW DOSE IN THE MORNING)
     Route: 065

REACTIONS (14)
  - Cardiac dysfunction [Recovered/Resolved]
  - Facial paralysis [Recovered/Resolved]
  - Tremor [Recovered/Resolved]
  - Cardiac disorder [Unknown]
  - Dyspnoea [Recovered/Resolved]
  - Choking sensation [Recovered/Resolved]
  - Productive cough [Recovered/Resolved]
  - Skin disorder [Recovered/Resolved]
  - Breast pain [Unknown]
  - Arthralgia [Unknown]
  - Headache [Not Recovered/Not Resolved]
  - Fatigue [Not Recovered/Not Resolved]
  - Dizziness [Not Recovered/Not Resolved]
  - Contraindicated product administered [Unknown]
